FAERS Safety Report 14790380 (Version 7)
Quarter: 2020Q3

REPORT INFORMATION
  Report Type: Spontaneous
  Country: BG (occurrence: BG)
  Receive Date: 20180423
  Receipt Date: 20181005
  Transmission Date: 20201104
  Serious: Yes (Hospitalization, Other)
  Sender: FDA-Public Use
  Company Number: IND-BG-009507513-1802BGR003232

PATIENT
  Age: 63 Year
  Sex: Female
  Weight: 55 kg

DRUGS (6)
  1. THERAPY UNSPECIFIED [Suspect]
     Active Substance: UNSPECIFIED INGREDIENT
     Dosage: UNK
  2. ETORICOXIB. [Suspect]
     Active Substance: ETORICOXIB
     Indication: ARTHRALGIA
  3. IBUPROFEN. [Suspect]
     Active Substance: IBUPROFEN
     Indication: BONE PAIN
     Dosage: 200 MG? 400 MG
     Route: 048
     Dates: start: 201706, end: 20170801
  4. ETORICOXIB. [Suspect]
     Active Substance: ETORICOXIB
     Indication: BONE PAIN
     Dosage: 120 MG, QD, TABLET
     Route: 048
     Dates: start: 20170601, end: 20170801
  5. ETORICOXIB. [Suspect]
     Active Substance: ETORICOXIB
     Indication: ARTHRALGIA
     Dosage: UNK
  6. IBUPROFEN. [Suspect]
     Active Substance: IBUPROFEN
     Indication: ARTHRALGIA

REACTIONS (10)
  - Incorrect product administration duration [Unknown]
  - Arthralgia [Recovering/Resolving]
  - Acute kidney injury [Recovered/Resolved]
  - Arthralgia [Unknown]
  - Bone pain [Recovering/Resolving]
  - Anaemia [Unknown]
  - Nephropathy [Recovered/Resolved]
  - Anaemia [Recovering/Resolving]
  - Nephropathy toxic [Recovered/Resolved]
  - Blood urea increased [Recovering/Resolving]

NARRATIVE: CASE EVENT DATE: 20170501
